FAERS Safety Report 19757992 (Version 5)
Quarter: 2021Q4

REPORT INFORMATION
  Report Type: Report from Study
  Country: US (occurrence: US)
  Receive Date: 20210827
  Receipt Date: 20211221
  Transmission Date: 20220303
  Serious: No
  Sender: FDA-Public Use
  Company Number: NVSC2021US193892

PATIENT
  Age: 54 Year
  Sex: Female

DRUGS (1)
  1. ENTRESTO [Suspect]
     Active Substance: SACUBITRIL\VALSARTAN
     Indication: Product used for unknown indication
     Dosage: 1 DF, BID (97/103MG)
     Route: 048
     Dates: start: 2021

REACTIONS (6)
  - Vertigo [Unknown]
  - Dizziness [Unknown]
  - Energy increased [Recovering/Resolving]
  - Nocturia [Not Recovered/Not Resolved]
  - Dry mouth [Unknown]
  - Stress [Unknown]

NARRATIVE: CASE EVENT DATE: 20210701
